FAERS Safety Report 22018487 (Version 1)
Quarter: 2023Q1

REPORT INFORMATION
  Report Type: Report from Study
  Country: PR (occurrence: PR)
  Receive Date: 20230222
  Receipt Date: 20230222
  Transmission Date: 20230417
  Serious: Yes (Other)
  Sender: FDA-Public Use
  Company Number: PR-ABBVIE-4313562

PATIENT
  Sex: Female
  Weight: 89 kg

DRUGS (6)
  1. VENCLEXTA [Suspect]
     Active Substance: VENETOCLAX
     Indication: Chronic lymphocytic leukaemia
     Route: 048
     Dates: start: 20211102
  2. LISINOPRIL [Concomitant]
     Active Substance: LISINOPRIL
     Indication: Product used for unknown indication
     Route: 048
  3. Panadol Extra Strengh [Concomitant]
     Indication: Product used for unknown indication
  4. DOLOGESIC [Concomitant]
     Active Substance: ACETAMINOPHEN\ALCOHOL\PHENYLTOLOXAMINE CITRATE
     Indication: Product used for unknown indication
     Route: 048
  5. FAMOTIDINE [Concomitant]
     Active Substance: FAMOTIDINE
     Indication: Product used for unknown indication
     Route: 048
  6. VITAMIN D3 [Concomitant]
     Active Substance: CHOLECALCIFEROL
     Indication: Product used for unknown indication
     Route: 048

REACTIONS (2)
  - Pulmonary mass [Unknown]
  - Cyst [Unknown]
